APPROVED DRUG PRODUCT: GUANETHIDINE MONOSULFATE
Active Ingredient: GUANETHIDINE MONOSULFATE
Strength: EQ 10MG SULFATE
Dosage Form/Route: TABLET;ORAL
Application: A086113 | Product #001
Applicant: WATSON LABORATORIES INC
Approved: Mar 26, 1985 | RLD: No | RS: No | Type: DISCN